FAERS Safety Report 12648429 (Version 1)
Quarter: 2016Q3

REPORT INFORMATION
  Report Type: Report from Study
  Country: US (occurrence: US)
  Receive Date: 20160812
  Receipt Date: 20160812
  Transmission Date: 20161109
  Serious: Yes (Other)
  Sender: FDA-Public Use
  Company Number: US-SAOL THERAPEUTICS-2016SAO00375

PATIENT
  Sex: Female

DRUGS (4)
  1. COMPOUNDED BACLOFEN [Suspect]
     Active Substance: BACLOFEN
     Indication: LUMBAR RADICULOPATHY
  2. DILAUDID [Suspect]
     Active Substance: HYDROMORPHONE HYDROCHLORIDE
     Dosage: 3.804 MG, \DAY
     Route: 037
     Dates: start: 20160209, end: 20160209
  3. COMPOUNDED BACLOFEN [Suspect]
     Active Substance: BACLOFEN
     Indication: PAIN
     Dosage: 228.22 ?G, \DAY
     Route: 037
     Dates: start: 20160209, end: 20160209
  4. BUPIVACAINE. [Suspect]
     Active Substance: BUPIVACAINE
     Dosage: 7.607 MG, \DAY
     Route: 037
     Dates: start: 20160209, end: 20160209

REACTIONS (8)
  - Balance disorder [Recovered/Resolved]
  - Cerebrospinal fluid leakage [Recovered/Resolved]
  - Hypoaesthesia [Recovered/Resolved]
  - Muscular weakness [Recovered/Resolved]
  - Implant site extravasation [Recovered/Resolved]
  - Device malfunction [Unknown]
  - Asthenia [Recovered/Resolved]
  - Off label use [Unknown]
